FAERS Safety Report 17974431 (Version 1)
Quarter: 2020Q3

REPORT INFORMATION
  Report Type: Spontaneous
  Country: US (occurrence: US)
  Receive Date: 20200702
  Receipt Date: 20200702
  Transmission Date: 20201103
  Serious: No
  Sender: FDA-Public Use
  Company Number: US-PFIZER INC-2020252779

PATIENT
  Age: 65 Year
  Sex: Female

DRUGS (2)
  1. XELJANZ XR [Suspect]
     Active Substance: TOFACITINIB CITRATE
     Dosage: 11 MG
     Dates: start: 20180101, end: 20200630
  2. MELOXICAM. [Suspect]
     Active Substance: MELOXICAM
     Dosage: UNK, DAILY [EVERYDAY]

REACTIONS (1)
  - Tinnitus [Unknown]
